FAERS Safety Report 14753681 (Version 1)
Quarter: 2018Q2

REPORT INFORMATION
  Report Type: Spontaneous
  Country: US (occurrence: US)
  Receive Date: 20180412
  Receipt Date: 20180412
  Transmission Date: 20180711
  Serious: Yes (Other)
  Sender: FDA-Public Use
  Company Number: US-PFIZER INC-2018125399

PATIENT
  Age: 51 Year
  Sex: Female

DRUGS (2)
  1. ANBESOL REGULAR STRENGTH [Suspect]
     Active Substance: BENZOCAINE
     Dosage: UNK, 1X/DAY
  2. ANBESOL REGULAR STRENGTH [Suspect]
     Active Substance: BENZOCAINE
     Indication: TOOTHACHE
     Dosage: UNK, 2X/DAY, (TEETH SWABBED 2X DAY)
     Dates: start: 201203, end: 201803

REACTIONS (1)
  - Neoplasm malignant [Recovered/Resolved]

NARRATIVE: CASE EVENT DATE: 201203
